FAERS Safety Report 5040736-5 (Version None)
Quarter: 2006Q3

REPORT INFORMATION
  Report Type: 
  Country: None (occurrence: None)
  Receive Date: 20060703
  Receipt Date: 20060605
  Transmission Date: 20061208
  Serious: Yes (Other)
  Sender: FDA-Public Use
  Company Number: PHRM2006FR01734

PATIENT
  Sex: Female

DRUGS (1)
  1. STALEVO 100 [Suspect]
     Route: 048

REACTIONS (2)
  - COLITIS [None]
  - DIARRHOEA [None]
